FAERS Safety Report 24278171 (Version 2)
Quarter: 2024Q4

REPORT INFORMATION
  Report Type: Spontaneous
  Country: US (occurrence: US)
  Receive Date: 20240903
  Receipt Date: 20241018
  Transmission Date: 20250115
  Serious: No
  Sender: ALEXION PHARMACEUTICALS
  Company Number: 2024A193128

PATIENT

DRUGS (1)
  1. SYMBICORT [Suspect]
     Active Substance: BUDESONIDE\FORMOTEROL FUMARATE DIHYDRATE
     Indication: Asthma
     Dosage: 160UG TWO TIMES A DAY

REACTIONS (6)
  - Asthma [Unknown]
  - Hypersensitivity [Unknown]
  - Cough [Unknown]
  - Device malfunction [Unknown]
  - Device use issue [Unknown]
  - Incorrect dose administered by device [Unknown]
